FAERS Safety Report 24845036 (Version 1)
Quarter: 2025Q1

REPORT INFORMATION
  Report Type: Spontaneous
  Country: BE (occurrence: BE)
  Receive Date: 20250115
  Receipt Date: 20250115
  Transmission Date: 20250408
  Serious: Yes (Other)
  Sender: MYLAN
  Company Number: BE-MYLANLABS-2025M1003362

PATIENT
  Age: 62 Year
  Sex: Male

DRUGS (3)
  1. VORICONAZOLE [Suspect]
     Active Substance: VORICONAZOLE
     Indication: Eye infection fungal
     Dosage: 6 MILLIGRAM/KILOGRAM, BID, ON DAY 1
     Route: 065
  2. VORICONAZOLE [Suspect]
     Active Substance: VORICONAZOLE
     Indication: Sinusitis fungal
     Dosage: 4 MILLIGRAM/KILOGRAM, BID, THEREAFTER
     Route: 065
  3. VORICONAZOLE [Suspect]
     Active Substance: VORICONAZOLE
     Indication: Aspergillus infection

REACTIONS (2)
  - Hepatotoxicity [Unknown]
  - Drug ineffective [Unknown]
